FAERS Safety Report 4864170-3 (Version None)
Quarter: 2005Q4

REPORT INFORMATION
  Report Type: 
  Country: None (occurrence: None)
  Receive Date: 20051219
  Receipt Date: 20051206
  Transmission Date: 20060501
  Serious: Yes (Other)
  Sender: FDA-Public Use
  Company Number: 2005165952

PATIENT
  Age: 61 Year
  Sex: Female
  Weight: 70 kg

DRUGS (14)
  1. FLUCONAZOLE [Suspect]
     Indication: ILL-DEFINED DISORDER
     Dosage: 150 MG, ORAL
     Route: 048
     Dates: start: 20050930, end: 20051001
  2. NYSTATIN/TINIDAZOLE (NYSTATIN, TINIDAZOLE) [Suspect]
     Indication: ORAL CANDIDIASIS
     Dosage: 1 ML, ORAL
     Route: 048
     Dates: start: 20050909, end: 20051001
  3. SALBUTAMOL (SALBUTAMOL) [Concomitant]
  4. BETAHISTINE DIHYDROCHLORIDE (BETAHISTINE HYDROCHLORIDE) [Concomitant]
  5. PROCHLORPERAZINE MALEATE (PROCHLORPERAZINE MALEATE) [Concomitant]
  6. LOPERAMIDE HYDROCHLORIDE [Concomitant]
  7. PARAFFIN, LIQUID (PARAFFIN, LIQUID) [Concomitant]
  8. OMEPRAZOLE [Concomitant]
  9. BECLOMETHASONE (BECLOMETASONE) [Concomitant]
  10. DIAZEPAM [Concomitant]
  11. TEMAZEPAM [Concomitant]
  12. GAVISCON [Concomitant]
  13. ACETAMINOPHEN W/ CODEINE [Concomitant]
  14. DOMPERIDONE (DOMPERIDONE) [Concomitant]

REACTIONS (2)
  - PHOTOSENSITIVITY REACTION [None]
  - URTICARIA [None]
